FAERS Safety Report 5748512-2 (Version None)
Quarter: 2008Q2

REPORT INFORMATION
  Report Type: 
  Country: None (occurrence: None)
  Receive Date: 20080521
  Receipt Date: 20080506
  Transmission Date: 20081010
  Serious: Yes (Other)
  Sender: FDA-Public Use
  Company Number: 2008012087

PATIENT
  Age: 65 Year
  Sex: Female
  Weight: 72.5755 kg

DRUGS (3)
  1. NEOSPORIN [Suspect]
     Indication: NASAL DRYNESS
     Dosage: A DAB ON THE Q-TIP 4 TIMES A DAY (4 IN 1 D), NASAL
     Route: 045
     Dates: start: 20071204, end: 20080421
  2. ATENOL (ATENOLOL) [Concomitant]
  3. LOVASTATIN [Concomitant]

REACTIONS (1)
  - COLITIS ULCERATIVE [None]
